FAERS Safety Report 5571815-1 (Version None)
Quarter: 2007Q4

REPORT INFORMATION
  Report Type: 
  Country: None (occurrence: None)
  Receive Date: 20071221
  Receipt Date: 20071214
  Transmission Date: 20080405
  Serious: Yes (Hospitalization)
  Sender: FDA-Public Use
  Company Number: B0500554A

PATIENT
  Age: 86 Year
  Sex: Male

DRUGS (9)
  1. AUGMENTIN '125' [Suspect]
     Indication: INFECTION
     Route: 048
     Dates: start: 20071004
  2. PREVISCAN [Suspect]
     Dosage: 1TAB PER DAY
     Route: 048
     Dates: start: 20071003, end: 20071004
  3. LASILIX [Concomitant]
     Route: 065
  4. IMOVANE [Concomitant]
     Route: 065
  5. CARDENSIEL [Concomitant]
     Route: 065
  6. MOPRAL [Concomitant]
     Route: 065
  7. DIFFU K [Concomitant]
     Route: 065
  8. AMARYL [Concomitant]
     Route: 065
  9. ACTRAPID [Concomitant]
     Route: 065

REACTIONS (3)
  - DRUG INTERACTION [None]
  - INTERNATIONAL NORMALISED RATIO INCREASED [None]
  - OVERDOSE [None]
